FAERS Safety Report 5393623-7 (Version None)
Quarter: 2007Q3

REPORT INFORMATION
  Report Type: 
  Country: None (occurrence: None)
  Receive Date: 20070723
  Receipt Date: 20070212
  Transmission Date: 20080115
  Serious: No
  Sender: FDA-Public Use
  Company Number: A0622110A

PATIENT
  Age: 58 Year
  Sex: Female

DRUGS (6)
  1. AVANDIA [Suspect]
     Dosage: 2MG PER DAY
     Route: 048
     Dates: start: 20060901, end: 20060901
  2. AVANDAMET [Suspect]
     Route: 048
     Dates: start: 20061101
  3. METFORMIN HCL [Concomitant]
  4. GLUCOPHAGE XR [Concomitant]
  5. LIPITOR [Concomitant]
  6. LISINOPRIL AND HYDROCHLOROTHIAZIDE [Concomitant]

REACTIONS (4)
  - DYSGEUSIA [None]
  - DYSPEPSIA [None]
  - HEADACHE [None]
  - RASH [None]
